FAERS Safety Report 10269982 (Version 1)
Quarter: 2014Q2

REPORT INFORMATION
  Report Type: Spontaneous
  Country: US (occurrence: None)
  Receive Date: 20140626
  Receipt Date: 20140626
  Transmission Date: 20141212
  Serious: No
  Sender: FDA-Public Use
  Company Number: None

PATIENT
  Age: 67 Year
  Sex: Male
  Weight: 122.47 kg

DRUGS (8)
  1. HYDROXYZ HCL [Suspect]
     Indication: HERPES ZOSTER
     Dosage: 25 MG, 30, 1 TAB 3X TIMES A DAY MOUTH
     Route: 048
     Dates: start: 20140610
  2. FINASTERIDE [Concomitant]
  3. ATTACE [Concomitant]
  4. ALLOPURINOL [Concomitant]
  5. METOPROLOL [Concomitant]
  6. METFORMIN [Concomitant]
  7. FISH OIL [Concomitant]
  8. ECOTRIN [Concomitant]

REACTIONS (2)
  - Rash generalised [None]
  - Pruritus [None]
